FAERS Safety Report 17864079 (Version 1)
Quarter: 2020Q2

REPORT INFORMATION
  Report Type: Spontaneous
  Country: US (occurrence: US)
  Receive Date: 20200605
  Receipt Date: 20200605
  Transmission Date: 20200714
  Serious: No
  Sender: FDA-Public Use
  Company Number: US-ELI_LILLY_AND_COMPANY-US202006000253

PATIENT
  Age: 60 Year
  Sex: Female

DRUGS (1)
  1. TRULICITY [Suspect]
     Active Substance: DULAGLUTIDE
     Indication: PRODUCT USED FOR UNKNOWN INDICATION
     Dosage: 0.75 MG, UNKNOWN
     Route: 065
     Dates: start: 20200229

REACTIONS (3)
  - Injection site erythema [Recovering/Resolving]
  - Injection site pruritus [Recovering/Resolving]
  - Injection site urticaria [Recovering/Resolving]

NARRATIVE: CASE EVENT DATE: 202003
